FAERS Safety Report 7628659-6 (Version None)
Quarter: 2011Q3

REPORT INFORMATION
  Report Type: 
  Country: None (occurrence: None)
  Receive Date: 20110722
  Receipt Date: 20110714
  Transmission Date: 20111222
  Serious: Yes (Hospitalization)
  Sender: FDA-Public Use
  Company Number: JP-NOVOPROD-331221

PATIENT
  Age: 54 Year
  Sex: Male
  Weight: 55 kg

DRUGS (4)
  1. LANTUS [Suspect]
     Indication: TYPE 2 DIABETES MELLITUS
     Dosage: 10 U, QD
     Route: 058
     Dates: end: 20090914
  2. AMARYL [Concomitant]
     Indication: TYPE 2 DIABETES MELLITUS
     Dosage: 1 TO 3 MG. QD
     Route: 048
  3. NOVORAPID 30 MIX CHU FLEXPEN [Suspect]
     Indication: TYPE 2 DIABETES MELLITUS
     Dosage: 4 U, QD (EVENING)
     Route: 058
     Dates: start: 20090701, end: 20090914
  4. NOVORAPID CHU FLEXPEN [Suspect]
     Indication: TYPE 2 DIABETES MELLITUS
     Dosage: 24 U, QD (12 U MORNING AND 12 U NOON)
     Route: 058
     Dates: start: 20090701, end: 20090914

REACTIONS (5)
  - ANTI-INSULIN ANTIBODY POSITIVE [None]
  - INJECTION SITE INDURATION [None]
  - DIABETES MELLITUS INADEQUATE CONTROL [None]
  - INJECTION SITE ERYTHEMA [None]
  - INJECTION SITE RASH [None]
